FAERS Safety Report 18954935 (Version 5)
Quarter: 2021Q2

REPORT INFORMATION
  Report Type: Other
  Country: CA (occurrence: CA)
  Receive Date: 20210301
  Receipt Date: 20210415
  Transmission Date: 20210717
  Serious: Yes (Hospitalization, Other)
  Sender: FDA-Public Use
  Company Number: CA-VALIDUS PHARMACEUTICALS LLC-CA-2021VAL000140

PATIENT

DRUGS (59)
  1. FUROSEMIDE. [Suspect]
     Active Substance: FUROSEMIDE
     Indication: OEDEMA
     Dosage: 40 MG, QD
     Route: 065
  2. DILTIAZEM HYDROCHLORIDE. [Suspect]
     Active Substance: DILTIAZEM HYDROCHLORIDE
     Indication: CORONARY ARTERY DISEASE
  3. DILTIAZEM HYDROCHLORIDE. [Suspect]
     Active Substance: DILTIAZEM HYDROCHLORIDE
     Indication: ANGINA PECTORIS
  4. GLUCOSAMINE [Suspect]
     Active Substance: GLUCOSAMINE
     Indication: ARTHRITIS
  5. ROSUVASTATIN. [Suspect]
     Active Substance: ROSUVASTATIN
     Indication: CEREBROVASCULAR ACCIDENT
     Dosage: 20 MG, Q12H
     Route: 048
  6. ACEBUTOLOL HYDROCHLORIDE. [Suspect]
     Active Substance: ACEBUTOLOL HYDROCHLORIDE
     Indication: CORONARY ARTERY DISEASE
     Dosage: 100 MG, Q12H
     Route: 065
  7. AMITRIPTYLINE HYDROCHLORIDE. [Suspect]
     Active Substance: AMITRIPTYLINE HYDROCHLORIDE
     Indication: INSOMNIA
     Dosage: 50 MG, QD
     Route: 065
  8. AMITRIPTYLINE HYDROCHLORIDE. [Suspect]
     Active Substance: AMITRIPTYLINE HYDROCHLORIDE
     Dosage: 75 MG, QD
     Route: 065
  9. AMLODIPINE                         /00972402/ [Suspect]
     Active Substance: AMLODIPINE BESYLATE
     Indication: ANGINA PECTORIS
  10. DILTIAZEM HYDROCHLORIDE. [Suspect]
     Active Substance: DILTIAZEM HYDROCHLORIDE
     Indication: CHEST PAIN
  11. GLYCERYL TRINITRATE [Suspect]
     Active Substance: NITROGLYCERIN
     Indication: CORONARY ARTERY DISEASE
     Dosage: 0.6 MG, QD
     Route: 065
  12. OXAZEPAM. [Suspect]
     Active Substance: OXAZEPAM
     Indication: HYPERTENSION
     Dosage: 40 MG, QD
     Route: 048
  13. OXAZEPAM. [Suspect]
     Active Substance: OXAZEPAM
     Indication: CORONARY ARTERY DISEASE
  14. ACETAMINOPHEN. [Concomitant]
     Active Substance: ACETAMINOPHEN
     Indication: PRODUCT USED FOR UNKNOWN INDICATION
     Dosage: UNK
  15. GALANTAMINE HYDROBROMIDE. [Suspect]
     Active Substance: GALANTAMINE HYDROBROMIDE
     Indication: DEMENTIA
     Dosage: 16 MG, QD
     Route: 065
  16. LACTULOSE. [Suspect]
     Active Substance: LACTULOSE
     Indication: CONSTIPATION
     Dosage: 15 MG, QD
     Route: 048
  17. MORPHINE SULFATE. [Suspect]
     Active Substance: MORPHINE SULFATE
     Indication: PAIN
     Dosage: 10 MG, QD
     Route: 065
  18. QUINAPRIL HYDROCHLORIDE. [Suspect]
     Active Substance: QUINAPRIL HYDROCHLORIDE
     Indication: HYPERTENSION
     Dosage: 20 MG, QD
     Route: 065
  19. CYCLOBENZAPRINE HYDROCHLORIDE. [Suspect]
     Active Substance: CYCLOBENZAPRINE HYDROCHLORIDE
     Indication: FIBROMYALGIA
  20. AGGRENOX [Suspect]
     Active Substance: ASPIRIN\DIPYRIDAMOLE
     Indication: CEREBROVASCULAR ACCIDENT
     Dosage: 1 DF, Q12H
     Route: 065
  21. AGGRENOX [Concomitant]
     Active Substance: ASPIRIN\DIPYRIDAMOLE
     Indication: PRODUCT USED FOR UNKNOWN INDICATION
     Dosage: UNK
  22. CARBAMAZEPINE. [Suspect]
     Active Substance: CARBAMAZEPINE
     Indication: PROPHYLAXIS
     Dosage: 100 MG, Q12H
     Route: 065
  23. ACEBUTOLOL HYDROCHLORIDE. [Suspect]
     Active Substance: ACEBUTOLOL HYDROCHLORIDE
     Indication: CHEST PAIN
     Dosage: 100 MG, QD
     Route: 065
  24. ACEBUTOLOL HYDROCHLORIDE. [Suspect]
     Active Substance: ACEBUTOLOL HYDROCHLORIDE
     Indication: ANGINA PECTORIS
     Dosage: 200 MG, (1 IN 84HOUR)
     Route: 065
  25. AMLODIPINE                         /00972402/ [Suspect]
     Active Substance: AMLODIPINE BESYLATE
     Indication: CORONARY ARTERY DISEASE
  26. GLUCOSAMINE [Suspect]
     Active Substance: GLUCOSAMINE
     Indication: PAIN
     Dosage: 500 MG, Q12H
     Route: 065
  27. CYCLOBENZAPRINE. [Suspect]
     Active Substance: CYCLOBENZAPRINE
     Indication: PAIN
     Dosage: 5 MG, Q12H
     Route: 065
  28. CYCLOBENZAPRINE. [Suspect]
     Active Substance: CYCLOBENZAPRINE
     Indication: FIBROMYALGIA
     Dosage: 5 MG, Q8H
     Route: 065
  29. ACETAMINOPHEN. [Suspect]
     Active Substance: ACETAMINOPHEN
     Indication: PAIN
  30. DULCOLAX (BISACODYL) [Suspect]
     Active Substance: BISACODYL
     Indication: CONSTIPATION
     Dosage: 2 DF, QD
     Route: 065
  31. ACEBUTOLOL HYDROCHLORIDE. [Suspect]
     Active Substance: ACEBUTOLOL HYDROCHLORIDE
     Indication: HYPERTENSION
     Dosage: 200 MG, Q12H
     Route: 065
  32. DIPYRIDAMOLE. [Suspect]
     Active Substance: DIPYRIDAMOLE
     Indication: CEREBROVASCULAR ACCIDENT
     Dosage: 2 DF, QD
     Route: 065
  33. GLYCERYL TRINITRATE [Suspect]
     Active Substance: NITROGLYCERIN
     Indication: CHEST PAIN
     Dosage: 0.4 MG, QD
     Route: 065
  34. OMEPRAZOLE. [Suspect]
     Active Substance: OMEPRAZOLE
     Indication: SMALL INTESTINE CARCINOMA
     Dosage: 20 MG, QD
     Route: 048
  35. OXAZEPAM. [Suspect]
     Active Substance: OXAZEPAM
     Indication: INSOMNIA
     Dosage: 15 MG, QD
     Route: 065
  36. CYCLOBENZAPRINE HYDROCHLORIDE. [Suspect]
     Active Substance: CYCLOBENZAPRINE HYDROCHLORIDE
     Indication: PAIN
     Dosage: 15 MG, Q8H
     Route: 065
  37. ACETAMINOPHEN. [Suspect]
     Active Substance: ACETAMINOPHEN
     Indication: PRODUCT USED FOR UNKNOWN INDICATION
     Dosage: 650 MG, UNK
     Route: 065
  38. GLUCOSAMINE SULFATE [Suspect]
     Active Substance: GLUCOSAMINE SULFATE
     Indication: PAIN
     Dosage: UNK
     Route: 065
  39. VACCINIUM MACROCARPON [Suspect]
     Active Substance: CRANBERRY
     Indication: BLADDER DISORDER
     Dosage: 500 MG, Q8H
     Route: 065
  40. TIOTROPIUM BROMIDE [Suspect]
     Active Substance: TIOTROPIUM BROMIDE
     Indication: CHRONIC OBSTRUCTIVE PULMONARY DISEASE
  41. SALBUTAMOL SULFATE [Suspect]
     Active Substance: ALBUTEROL SULFATE
     Dosage: 200 MG, Q6H
     Route: 065
  42. ACETYLSALICYLIC ACID [Suspect]
     Active Substance: ASPIRIN
     Indication: PRODUCT USED FOR UNKNOWN INDICATION
     Dosage: UNK
     Route: 065
  43. DILTIAZEM HYDROCHLORIDE. [Suspect]
     Active Substance: DILTIAZEM HYDROCHLORIDE
     Indication: HYPERTENSION
     Dosage: 360 MG, QD
     Route: 065
  44. MAGNESIUM HYDROXIDE. [Suspect]
     Active Substance: MAGNESIUM HYDROXIDE
     Indication: CONSTIPATION
     Dosage: 2 DF, QD
     Route: 065
  45. VACCINIUM OXYCOCCOS FRUIT EXTRACT [Concomitant]
     Indication: PRODUCT USED FOR UNKNOWN INDICATION
     Dosage: UNK
  46. PLANTAGO OVATA [Concomitant]
     Active Substance: HERBALS\PLANTAGO OVATA LEAF
     Indication: PRODUCT USED FOR UNKNOWN INDICATION
     Dosage: UNK
  47. CARBAMAZEPINE. [Suspect]
     Active Substance: CARBAMAZEPINE
     Indication: SEIZURE
     Dosage: 200 MG, Q12H
     Route: 065
  48. GLYCERYL TRINITRATE [Suspect]
     Active Substance: NITROGLYCERIN
     Indication: ANGINA PECTORIS
     Dosage: 1 DF, QD
     Route: 065
  49. MORPHINE SULFATE. [Suspect]
     Active Substance: MORPHINE SULFATE
     Indication: FIBROMYALGIA
  50. QUINAPRIL HYDROCHLORIDE. [Suspect]
     Active Substance: QUINAPRIL HYDROCHLORIDE
     Indication: CORONARY ARTERY DISEASE
     Dosage: 40 MG, QD
     Route: 065
  51. AMLODIPINE BESILATE [Suspect]
     Active Substance: AMLODIPINE BESYLATE
     Indication: CORONARY ARTERY DISEASE
     Dosage: UNK
     Route: 065
  52. ROSUVASTATIN CALCIUM. [Suspect]
     Active Substance: ROSUVASTATIN CALCIUM
     Indication: CEREBROVASCULAR ACCIDENT
     Dosage: UNK
     Route: 048
  53. TIOTROPIUM BROMIDE [Suspect]
     Active Substance: TIOTROPIUM BROMIDE
     Indication: PRODUCT USED FOR UNKNOWN INDICATION
     Dosage: 18 MG, QD
     Route: 065
  54. SALBUTAMOL SULFATE [Suspect]
     Active Substance: ALBUTEROL SULFATE
     Indication: PRODUCT USED FOR UNKNOWN INDICATION
     Dosage: 100 ?G, QD
     Route: 065
  55. AMLODIPINE                         /00972402/ [Suspect]
     Active Substance: AMLODIPINE BESYLATE
     Indication: HYPERTENSION
     Dosage: 5 MG, QD
     Route: 065
  56. LEVOFLOXACIN. [Suspect]
     Active Substance: LEVOFLOXACIN
     Indication: URINARY TRACT INFECTION
     Dosage: 250 MG, QD
     Route: 065
  57. LEVOTHYROXINE SODIUM. [Suspect]
     Active Substance: LEVOTHYROXINE SODIUM
     Indication: THYROID DISORDER
     Dosage: 0.088 MG, QD
     Route: 065
  58. LEVOTHYROXINE SODIUM. [Suspect]
     Active Substance: LEVOTHYROXINE SODIUM
     Indication: RADIOACTIVE IODINE THERAPY
  59. ACETYLSALICYLIC ACID W/CAFFEINE/PARACETAMOL [Suspect]
     Active Substance: ACETAMINOPHEN\ASPIRIN\CAFFEINE\CODEINE PHOSPHATE
     Indication: PAIN
     Dosage: 1 DF, QD
     Route: 065

REACTIONS (14)
  - Blood calcium decreased [Unknown]
  - Sedation complication [Unknown]
  - Hypotension [Unknown]
  - Orthostatic hypotension [Unknown]
  - Constipation [Unknown]
  - Toxicity to various agents [Unknown]
  - Balance disorder [Unknown]
  - Depressed level of consciousness [Unknown]
  - Fall [Unknown]
  - Sedation [Unknown]
  - Pain [Unknown]
  - Cognitive disorder [Unknown]
  - Creatinine renal clearance decreased [Unknown]
  - Mobility decreased [Unknown]
